FAERS Safety Report 25681016 (Version 1)
Quarter: 2025Q3

REPORT INFORMATION
  Report Type: Spontaneous
  Country: GB (occurrence: GB)
  Receive Date: 20250814
  Receipt Date: 20250814
  Transmission Date: 20251021
  Serious: Yes (Other)
  Sender: AUROBINDO
  Company Number: GB-MHRA-EMIS-6856-961d3758-5b53-4e92-8837-e6000dc9532b

PATIENT
  Age: 25 Year
  Sex: Male
  Weight: 56 kg

DRUGS (2)
  1. CIPROFLOXACIN [Suspect]
     Active Substance: CIPROFLOXACIN
     Indication: Product used for unknown indication
     Dosage: 1 DOSAGE FORM, TWO TIMES A DAY (~ONE TO BE TAKEN TWICE A DAY)
     Route: 065
     Dates: start: 20250711, end: 20250731
  2. AMOXICILLIN\CLAVULANATE POTASSIUM [Concomitant]
     Active Substance: AMOXICILLIN\CLAVULANATE POTASSIUM
     Indication: Product used for unknown indication
     Dosage: 1 DOSAGE FORM, 3 TIMES A DAY(TAKE ONE TABLET THREE TIMES A DAY FOR 10 DAYS )
     Route: 065
     Dates: start: 20250731

REACTIONS (1)
  - Adverse drug reaction [Recovering/Resolving]
